FAERS Safety Report 12391298 (Version 4)
Quarter: 2018Q3

REPORT INFORMATION
  Report Type: Spontaneous
  Country: AU (occurrence: AU)
  Receive Date: 20160520
  Receipt Date: 20180716
  Transmission Date: 20181010
  Serious: Yes (Hospitalization, Other)
  Sender: FDA-Public Use
  Company Number: AU-BRISTOL-MYERS SQUIBB COMPANY-BMS-2016-038333

PATIENT
  Age: 75 Year
  Sex: Male

DRUGS (2)
  1. OPDIVO [Suspect]
     Active Substance: NIVOLUMAB
     Indication: MALIGNANT MELANOMA
     Dosage: 1 MG/KG, Q3WK
     Route: 065
     Dates: start: 201503
  2. YERVOY [Suspect]
     Active Substance: IPILIMUMAB
     Indication: MALIGNANT MELANOMA
     Dosage: 3 MG/KG, Q3WK
     Route: 065
     Dates: start: 201503

REACTIONS (15)
  - Incontinence [Unknown]
  - Oral candidiasis [Unknown]
  - Rash [Unknown]
  - Vomiting [Unknown]
  - Fatigue [Unknown]
  - Depressed mood [Unknown]
  - Decreased appetite [Unknown]
  - Confusional state [Unknown]
  - Nausea [Unknown]
  - Dehydration [Unknown]
  - Hypothyroidism [Unknown]
  - Abdominal pain [Unknown]
  - Neoplasm [Unknown]
  - Colitis [Unknown]
  - Diarrhoea [Unknown]
